FAERS Safety Report 9970401 (Version 1)
Quarter: 2014Q1

REPORT INFORMATION
  Report Type: Spontaneous
  Country: US (occurrence: None)
  Receive Date: 20140305
  Receipt Date: 20140305
  Transmission Date: 20141002
  Serious: Yes (Life-Threatening)
  Sender: FDA-Public Use
  Company Number: None

PATIENT
  Age: 54 Year
  Sex: Female
  Weight: 68.04 kg

DRUGS (1)
  1. STROMECTOL [Suspect]
     Indication: ACARODERMATITIS
     Dosage: 2 PILLS
     Route: 048
     Dates: start: 20140212, end: 20140219

REACTIONS (6)
  - Convulsion [None]
  - Local swelling [None]
  - Nausea [None]
  - Headache [None]
  - Heart rate increased [None]
  - Confusional state [None]
